FAERS Safety Report 17849525 (Version 1)
Quarter: 2020Q2

REPORT INFORMATION
  Report Type: Spontaneous
  Country: US (occurrence: US)
  Receive Date: 20200602
  Receipt Date: 20200602
  Transmission Date: 20200714
  Serious: Yes (Disabling)
  Sender: FDA-Public Use
  Company Number: None

PATIENT
  Age: 49 Year
  Sex: Male
  Weight: 90 kg

DRUGS (7)
  1. RITALIN [Concomitant]
     Active Substance: METHYLPHENIDATE HYDROCHLORIDE
  2. FINASTERIDE. [Suspect]
     Active Substance: FINASTERIDE
     Indication: ALOPECIA
     Dates: start: 20100202, end: 20160603
  3. ARMOUR THYROID [Concomitant]
     Active Substance: THYROID, PORCINE
  4. MELATONIN [Concomitant]
     Active Substance: MELATONIN
  5. LINSINOPRIL [Concomitant]
     Active Substance: LISINOPRIL
  6. AMBIEN [Concomitant]
     Active Substance: ZOLPIDEM TARTRATE
  7. FAMCICLOVIR. [Concomitant]
     Active Substance: FAMCICLOVIR

REACTIONS (3)
  - Chronic fatigue syndrome [None]
  - Erectile dysfunction [None]
  - Depression [None]

NARRATIVE: CASE EVENT DATE: 20160601
